FAERS Safety Report 7759218-2 (Version None)
Quarter: 2011Q3

REPORT INFORMATION
  Report Type: 
  Country: None (occurrence: None)
  Receive Date: 20110915
  Receipt Date: 20110831
  Transmission Date: 20111222
  Serious: Yes (Hospitalization)
  Sender: FDA-Public Use
  Company Number: IMP_05407_2011

PATIENT
  Sex: Male
  Weight: 195.8 kg

DRUGS (3)
  1. PROPAFENONE HCL [Suspect]
     Indication: PRODUCT USED FOR UNKNOWN INDICATION
     Dosage: 425 MG QD ORAL
     Route: 048
     Dates: start: 20110625, end: 20110625
  2. RYTHMOL [Suspect]
     Indication: PRODUCT USED FOR UNKNOWN INDICATION
     Dosage: 425 MG QD ORAL, 425 MG QD ORAL
     Route: 048
     Dates: start: 20110709
  3. RYTHMOL [Suspect]
     Indication: PRODUCT USED FOR UNKNOWN INDICATION
     Dosage: 425 MG QD ORAL, 425 MG QD ORAL
     Route: 048
     Dates: start: 20110611

REACTIONS (16)
  - PARAESTHESIA ORAL [None]
  - MEAN CELL HAEMOGLOBIN CONCENTRATION INCREASED [None]
  - GLIOMA [None]
  - CYST [None]
  - CONVULSION [None]
  - CHRONIC SINUSITIS [None]
  - TREMOR [None]
  - NASAL MUCOSAL HYPERTROPHY [None]
  - PCO2 DECREASED [None]
  - LYMPHOCYTE COUNT DECREASED [None]
  - GRANULOCYTE COUNT INCREASED [None]
  - ALTERED STATE OF CONSCIOUSNESS [None]
  - MUSCLE TWITCHING [None]
  - DIZZINESS [None]
  - FALL [None]
  - APHASIA [None]
